FAERS Safety Report 11356762 (Version 1)
Quarter: 2015Q3

REPORT INFORMATION
  Report Type: Spontaneous
  Country: US (occurrence: US)
  Receive Date: 20150803
  Receipt Date: 20150803
  Transmission Date: 20151125
  Serious: No
  Sender: FDA-Public Use
  Company Number: US-ELI_LILLY_AND_COMPANY-US201211002455

PATIENT
  Age: 38 Year
  Sex: Female

DRUGS (3)
  1. ZYPREXA [Suspect]
     Active Substance: OLANZAPINE
     Dosage: 10 MG, QD
     Dates: start: 2006
  2. ZYPREXA [Suspect]
     Active Substance: OLANZAPINE
     Dosage: 5 MG, QD
  3. ZYPREXA [Suspect]
     Active Substance: OLANZAPINE
     Dosage: 2.5 MG, QD
     Dates: start: 2010

REACTIONS (6)
  - Arthralgia [Unknown]
  - Hot flush [Unknown]
  - Libido decreased [Unknown]
  - Vulvovaginal dryness [Unknown]
  - Memory impairment [Unknown]
  - Thyroid function test abnormal [Unknown]
